FAERS Safety Report 18282861 (Version 2)
Quarter: 2020Q3

REPORT INFORMATION
  Report Type: Other
  Country: CA (occurrence: CA)
  Receive Date: 20200918
  Receipt Date: 20200923
  Transmission Date: 20201103
  Serious: Yes (Other)
  Sender: FDA-Public Use
  Company Number: CA-ROCHE-2678436

PATIENT
  Age: 57 Year
  Sex: Female

DRUGS (8)
  1. RITUXAN [Suspect]
     Active Substance: RITUXIMAB
     Indication: THROMBOTIC THROMBOCYTOPENIC PURPURA
     Dosage: DRUG DOSE FIRST ADMINISTERED IS UNKNOWN, RITUXIMAB BATCH/LOT NOT AVAILABLE AS NOT RECEIVED THROUGH R
     Route: 042
     Dates: start: 20130101
  2. RITUXAN [Suspect]
     Active Substance: RITUXIMAB
     Dosage: DRUG DOSE FIRST ADMINISTERED IS UNKNOWN, DOSING DETAILS UNKNOWN AS NO PIR RECEIVED.
     Route: 042
     Dates: start: 20200812, end: 20200909
  3. DELTASONE [Concomitant]
     Active Substance: PREDNISONE
     Indication: PRODUCT USED FOR UNKNOWN INDICATION
     Dosage: ONGOING, TAPERING
     Route: 048
  4. PROMENSIL [Concomitant]
     Indication: PRODUCT USED FOR UNKNOWN INDICATION
  5. ELAVIL [Concomitant]
     Active Substance: AMITRIPTYLINE HYDROCHLORIDE
     Indication: PRODUCT USED FOR UNKNOWN INDICATION
     Dosage: ONGOING, TWO 10MG AT BEDTIME. WEANING
     Route: 048
  6. CRESTOR [Concomitant]
     Active Substance: ROSUVASTATIN CALCIUM
     Indication: PRODUCT USED FOR UNKNOWN INDICATION
     Route: 048
  7. POTASSIUM [Concomitant]
     Active Substance: POTASSIUM
     Indication: HYPOKALAEMIA
  8. IMOVANE [Concomitant]
     Active Substance: ZOPICLONE
     Dosage: ONGOING, BEDTIME AS REQUIRED
     Route: 048

REACTIONS (2)
  - Vital functions abnormal [Recovered/Resolved]
  - Infusion related reaction [Unknown]

NARRATIVE: CASE EVENT DATE: 2020
